FAERS Safety Report 25630999 (Version 1)
Quarter: 2025Q3

REPORT INFORMATION
  Report Type: Spontaneous
  Country: US (occurrence: US)
  Receive Date: 20250801
  Receipt Date: 20250801
  Transmission Date: 20251021
  Serious: No
  Sender: MERCK SHARP & DOHME LLC
  Company Number: US-009507513-2308914

PATIENT
  Age: 66 Year
  Sex: Female

DRUGS (14)
  1. KEYTRUDA [Suspect]
     Active Substance: PEMBROLIZUMAB
     Indication: Renal cell carcinoma
     Route: 042
     Dates: end: 2025
  2. VITAMIN B12 [Concomitant]
     Active Substance: CYANOCOBALAMIN
  3. ZOFRAN [Concomitant]
     Active Substance: ONDANSETRON HYDROCHLORIDE
  4. INLYTA [Concomitant]
     Active Substance: AXITINIB
  5. CEFALEX [Concomitant]
  6. LEVOTHYROXINE [Concomitant]
     Active Substance: LEVOTHYROXINE
  7. FENTANYL [Concomitant]
     Active Substance: FENTANYL
  8. PRADAXA [Concomitant]
     Active Substance: DABIGATRAN ETEXILATE MESYLATE
  9. LISINOPRIL [Concomitant]
     Active Substance: LISINOPRIL
  10. CEFPODOXIME [Concomitant]
     Active Substance: CEFPODOXIME
  11. PEPCID [Concomitant]
     Active Substance: FAMOTIDINE
  12. OXYCODONE [Concomitant]
     Active Substance: OXYCODONE
  13. CYMBALTA [Concomitant]
     Active Substance: DULOXETINE HYDROCHLORIDE
  14. CRESTOR [Concomitant]
     Active Substance: ROSUVASTATIN CALCIUM

REACTIONS (1)
  - Malaise [Unknown]

NARRATIVE: CASE EVENT DATE: 20250626
